FAERS Safety Report 26187959 (Version 1)
Quarter: 2025Q4

REPORT INFORMATION
  Report Type: Spontaneous
  Country: US (occurrence: US)
  Receive Date: 20251222
  Receipt Date: 20251222
  Transmission Date: 20260117
  Serious: Yes (Other)
  Sender: AMGEN
  Company Number: US-AMGEN-USASP2025248631

PATIENT
  Age: 11 Year
  Sex: Female

DRUGS (8)
  1. PREDNISONE [Suspect]
     Active Substance: PREDNISONE
     Indication: Herpes zoster
     Dosage: 40 MILLIGRAM, QD
     Route: 065
  2. PREDNISONE [Suspect]
     Active Substance: PREDNISONE
     Indication: Optic disc oedema
     Dosage: 50 MILLIGRAM, QD, FOLLOWED BY A TAPER DECREASING 10 MG WEEKLY UNTIL OFF
     Route: 048
  3. PREDNISONE [Suspect]
     Active Substance: PREDNISONE
     Indication: Neuroborreliosis
  4. CEPHALEXIN [Concomitant]
     Active Substance: CEPHALEXIN
     Dosage: 250 MILLIGRAM, Q8H
  5. CEPHALEXIN [Concomitant]
     Active Substance: CEPHALEXIN
     Dosage: 500 MILLIGRAM, BID
  6. VALACYCLOVIR [Concomitant]
     Active Substance: VALACYCLOVIR HYDROCHLORIDE
     Dosage: 1000 MILLIGRAM, TID
  7. DEXTROAMPHETAMINE [Concomitant]
     Active Substance: DEXTROAMPHETAMINE
     Indication: Herpes zoster
     Dosage: 500 MILLIGRAM, BID
  8. AMPHETAMINE [Concomitant]
     Active Substance: AMPHETAMINE
     Indication: Herpes zoster

REACTIONS (7)
  - Neuroborreliosis [Unknown]
  - Heliotrope rash [Unknown]
  - Optic disc oedema [Unknown]
  - Lyme disease [Unknown]
  - Pain in extremity [Recovered/Resolved]
  - Muscular weakness [Recovered/Resolved]
  - Off label use [Unknown]
